FAERS Safety Report 9785949 (Version 1)
Quarter: 2013Q4

REPORT INFORMATION
  Report Type: Spontaneous
  Country: US (occurrence: US)
  Receive Date: 20131227
  Receipt Date: 20131227
  Transmission Date: 20140711
  Serious: Yes (Hospitalization)
  Sender: FDA-Public Use
  Company Number: US-PFIZER INC-2013366111

PATIENT
  Age: 70 Year
  Sex: Male

DRUGS (14)
  1. SUTENT [Suspect]
     Indication: MALIGNANT NEOPLASM OF RENAL PELVIS
     Dosage: 25 MG, UNK
     Dates: start: 20130913
  2. ACETAMINOPHEN [Concomitant]
     Dosage: UNK
  3. AMLODIPINE BESILATE [Concomitant]
     Dosage: UNK
  4. ASPIR-81 [Concomitant]
     Dosage: 81 UNK, UNK
  5. BISACODYL [Concomitant]
     Dosage: UNK
  6. COMBIVENT [Concomitant]
     Dosage: UNK
  7. DOCUSATE SODIUM [Concomitant]
     Dosage: UNK
  8. MILK OF MAGNESIA [Concomitant]
     Dosage: UNK
  9. GLIPIZIDE XL [Concomitant]
     Dosage: UNK
  10. IPRATROPIUM BROMIDE [Concomitant]
     Dosage: UNK
  11. JANUVIA [Concomitant]
     Dosage: UNK
  12. LISINOPRIL [Concomitant]
     Dosage: UNK
  13. NEURONTIN [Concomitant]
     Dosage: UNK
  14. SIMVASTATIN [Concomitant]
     Dosage: UNK

REACTIONS (1)
  - Diarrhoea [Unknown]
